FAERS Safety Report 5519371-8 (Version None)
Quarter: 2007Q4

REPORT INFORMATION
  Report Type: 
  Country: None (occurrence: None)
  Receive Date: 20071114
  Receipt Date: 20071030
  Transmission Date: 20080405
  Serious: Yes (Other)
  Sender: FDA-Public Use
  Company Number: MK-6035682

PATIENT
  Age: 64 Year
  Sex: Female
  Weight: 80 kg

DRUGS (2)
  1. BISOMERCK /00802602/ (BISOPROLOL FUMARATE) [Suspect]
     Indication: SUICIDE ATTEMPT
     Dosage: 10 MG; 10_NULL_NULL;ORAL
     Route: 048
  2. ALCOHOL /00002101/ (ETHANOL) [Suspect]
     Indication: DRUG USE FOR UNKNOWN INDICATION

REACTIONS (3)
  - DIZZINESS [None]
  - OVERDOSE [None]
  - SUICIDE ATTEMPT [None]
